FAERS Safety Report 8444474-8 (Version None)
Quarter: 2012Q2

REPORT INFORMATION
  Report Type: 
  Country: None (occurrence: None)
  Receive Date: 20120618
  Receipt Date: 20120608
  Transmission Date: 20120825
  Serious: Yes (Hospitalization)
  Sender: FDA-Public Use
  Company Number: JP-PFIZER INC-2012133068

PATIENT
  Age: 74 Year
  Sex: Female
  Weight: 51 kg

DRUGS (23)
  1. FLUOROURACIL [Suspect]
     Dosage: 1600 MG/M2, CONTINUOUS ADMINISTRATION, 2ND CYCLE
     Route: 042
     Dates: start: 20120502
  2. DEXAMETHASONE SODIUM PHOSPHATE [Concomitant]
     Indication: PROPHYLAXIS
     Dosage: UNK
     Route: 042
     Dates: start: 20120410
  3. BLINDED THERAPY [Suspect]
     Dosage: 2ND CYCLE
     Route: 042
     Dates: start: 20120426
  4. BLINDED THERAPY [Suspect]
     Dosage: 3RD CYCLE
     Route: 042
     Dates: start: 20120523
  5. POLARAMINE [Concomitant]
     Indication: PROPHYLAXIS
     Dosage: UNK
     Route: 042
     Dates: start: 20120410
  6. LEUCOVORIN CALCIUM [Suspect]
     Indication: COLORECTAL CANCER METASTATIC
     Dosage: CYCLIC
     Route: 042
     Dates: start: 20120410
  7. LEUCOVORIN CALCIUM [Suspect]
     Dosage: 2ND CYCLE
     Route: 042
     Dates: start: 20120502
  8. EMEND [Concomitant]
     Indication: PROPHYLAXIS
     Dosage: UNK
     Dates: start: 20120410
  9. BLINDED THERAPY [Suspect]
     Indication: COLORECTAL CANCER METASTATIC
     Dosage: CYCLIC
     Route: 042
     Dates: start: 20120410
  10. PROMACTA [Concomitant]
     Indication: GASTRITIS PROPHYLAXIS
     Dosage: UNK
     Dates: start: 20110930
  11. MINODRONIC ACID [Concomitant]
     Indication: OSTEOPOROSIS
     Dosage: UNK
     Route: 048
     Dates: start: 20111001
  12. IRINOTECAN HCL [Suspect]
     Indication: COLORECTAL CANCER METASTATIC
     Dosage: CYCLIC
     Route: 042
     Dates: start: 20120410
  13. IRINOTECAN HCL [Suspect]
     Dosage: 3RD CYCLE
     Route: 042
     Dates: start: 20120523
  14. GLAKAY [Concomitant]
     Indication: OSTEOPOROSIS
     Dosage: UNK
     Route: 048
     Dates: start: 20111001
  15. PYDOXAL [Concomitant]
     Indication: PERIPHERAL SENSORY NEUROPATHY
     Dosage: UNK
     Route: 048
     Dates: start: 20110627
  16. IRINOTECAN HCL [Suspect]
     Dosage: 120 MG/M2, 2ND CYCLE
     Route: 042
     Dates: start: 20120502
  17. FLUOROURACIL [Suspect]
     Indication: COLORECTAL CANCER METASTATIC
     Dosage: CYCLIC
     Route: 042
     Dates: start: 20120410
  18. LYRICA [Concomitant]
     Indication: PERIPHERAL SENSORY NEUROPATHY
     Dosage: UNK
     Route: 048
     Dates: start: 20120201
  19. CANDESARTAN CILEXETIL [Concomitant]
     Indication: HYPERTENSION
     Dosage: UNK
     Route: 048
     Dates: start: 20120504
  20. ATROPINE [Concomitant]
     Indication: PROPHYLAXIS
     Dosage: UNK
     Route: 042
     Dates: start: 20120502
  21. FLUOROURACIL [Suspect]
     Dosage: 3RD CYCLE
     Route: 042
     Dates: start: 20120523
  22. LEUCOVORIN CALCIUM [Suspect]
     Dosage: 3RD CYCLE
     Route: 042
     Dates: start: 20120523
  23. ALOXI [Concomitant]
     Indication: PROPHYLAXIS
     Dosage: UNK
     Route: 042
     Dates: start: 20120410

REACTIONS (1)
  - LUNG INFECTION [None]
